FAERS Safety Report 21144228 (Version 2)
Quarter: 2022Q3

REPORT INFORMATION
  Report Type: Spontaneous
  Country: CI (occurrence: CI)
  Receive Date: 20220728
  Receipt Date: 20220823
  Transmission Date: 20221027
  Serious: Yes (Disabling)
  Sender: FDA-Public Use
  Company Number: CI-NOVARTISPH-NVSC2022CI170635

PATIENT
  Age: 65 Year
  Sex: Female

DRUGS (1)
  1. DICLOFENAC SODIUM [Suspect]
     Active Substance: DICLOFENAC SODIUM
     Indication: Back pain
     Dosage: 75 MG, BID (1 CAPSULE TWICE DAILY)
     Route: 048

REACTIONS (2)
  - Back pain [Recovering/Resolving]
  - Drug ineffective [Recovering/Resolving]
